FAERS Safety Report 4788110-0 (Version None)
Quarter: 2005Q4

REPORT INFORMATION
  Report Type: 
  Country: None (occurrence: None)
  Receive Date: 20051003
  Receipt Date: 20050926
  Transmission Date: 20060501
  Serious: Yes (Hospitalization)
  Sender: FDA-Public Use
  Company Number: 212833

PATIENT
  Age: 25 Year
  Sex: Female

DRUGS (2)
  1. EFALIZUMAB (EFALIZUMAB) PWDR + SOLVENT, INJECTION SOLN, 125MG [Suspect]
     Indication: PSORIASIS
     Dosage: 1MG/KG, 1/WEEK, SUBCUTANEOUS
     Route: 058
     Dates: start: 20041221, end: 20050118
  2. RINDERON (BETAMETHASONE ACETATE, BETAMETHASONE, BETAMETHASONE SODIUM P [Concomitant]

REACTIONS (15)
  - CHEST X-RAY ABNORMAL [None]
  - CULTURE POSITIVE [None]
  - EXFOLIATIVE RASH [None]
  - HAEMATOCRIT DECREASED [None]
  - HAEMOGLOBIN DECREASED [None]
  - LEUKOCYTOSIS [None]
  - NECK PAIN [None]
  - PAIN IN EXTREMITY [None]
  - PULMONARY VASCULAR DISORDER [None]
  - PUSTULAR PSORIASIS [None]
  - PYREXIA [None]
  - SKIN DISORDER [None]
  - SKIN LESION [None]
  - SKIN ULCER [None]
  - STAPHYLOCOCCAL INFECTION [None]
